FAERS Safety Report 9321453 (Version 1)
Quarter: 2013Q2

REPORT INFORMATION
  Report Type: Spontaneous
  Country: FR (occurrence: FR)
  Receive Date: 20130531
  Receipt Date: 20130531
  Transmission Date: 20140414
  Serious: Yes (Hospitalization)
  Sender: FDA-Public Use
  Company Number: FR-PERRIGO-13FR005544

PATIENT
  Age: 13 Year
  Sex: Female
  Weight: 51 kg

DRUGS (1)
  1. ACETAMINOPHEN 650MG ER 544 [Suspect]
     Indication: INTENTIONAL OVERDOSE
     Dosage: 30 G, SINGLE
     Route: 048

REACTIONS (5)
  - Renal failure [Recovering/Resolving]
  - Analgesic drug level increased [Recovered/Resolved]
  - Hepatic failure [Recovering/Resolving]
  - Hepatocellular injury [Not Recovered/Not Resolved]
  - Intentional overdose [Recovering/Resolving]
